FAERS Safety Report 5162464-8 (Version None)
Quarter: 2006Q4

REPORT INFORMATION
  Report Type: 
  Country: None (occurrence: None)
  Receive Date: 20061129
  Receipt Date: 20061129
  Transmission Date: 20070319
  Serious: Yes (Hospitalization)
  Sender: FDA-Public Use
  Company Number: None

PATIENT
  Age: 80 Year
  Sex: Female
  Weight: 102 kg

DRUGS (2)
  1. SITAGLIPTIN 100 MG MERCK [Suspect]
     Indication: DIABETES MELLITUS NON-INSULIN-DEPENDENT
     Dates: start: 20061024, end: 20061121
  2. TNTE [Concomitant]

REACTIONS (3)
  - EOSINOPHILIA [None]
  - ERYTHEMA [None]
  - SKIN EXFOLIATION [None]
